FAERS Safety Report 9738793 (Version 1)
Quarter: 2013Q4

REPORT INFORMATION
  Report Type: Spontaneous
  Country: IN (occurrence: US)
  Receive Date: 20131209
  Receipt Date: 20131209
  Transmission Date: 20140711
  Serious: No
  Sender: FDA-Public Use
  Company Number: IN-BAYER-2013-147266

PATIENT
  Age: 73 Year
  Sex: Female
  Weight: 73 kg

DRUGS (3)
  1. CLIMARA [Suspect]
     Indication: HOT FLUSH
     Dosage: 0.01MG/DAY ONCE PER WEK
     Route: 062
     Dates: start: 201304
  2. MULTIVITAMIN [Concomitant]
     Indication: ROUTINE HEALTH MAINTENANCE
     Dosage: UNK
     Route: 048
  3. SYNTHROID [Concomitant]
     Indication: HYPOTHYROIDISM
     Dosage: 0.088 ?G, QD
     Route: 048
     Dates: start: 19750101

REACTIONS (9)
  - Hair texture abnormal [Recovered/Resolved]
  - Dry skin [Recovered/Resolved]
  - Hot flush [Recovered/Resolved]
  - Depression [Recovered/Resolved]
  - Asthenia [Recovered/Resolved]
  - Libido decreased [Recovered/Resolved]
  - Vulvovaginal dryness [Recovered/Resolved]
  - Extra dose administered [None]
  - Product adhesion issue [None]
